FAERS Safety Report 6213125-5 (Version None)
Quarter: 2009Q2

REPORT INFORMATION
  Report Type: 
  Country: None (occurrence: None)
  Receive Date: 20090601
  Receipt Date: 20090601
  Transmission Date: 20091009
  Serious: Yes (Hospitalization)
  Sender: FDA-Public Use
  Company Number: None

PATIENT
  Sex: Female
  Weight: 68 kg

DRUGS (2)
  1. ZOMETA [Suspect]
     Dosage: 3.3M MG
  2. VITAMIN D [Suspect]
     Dosage: 400 IU

REACTIONS (6)
  - BLOOD CREATININE INCREASED [None]
  - CHEST PAIN [None]
  - HEADACHE [None]
  - METASTASES TO BONE [None]
  - PANCREATIC DISORDER [None]
  - TROPONIN INCREASED [None]
